FAERS Safety Report 13750807 (Version 1)
Quarter: 2017Q3

REPORT INFORMATION
  Report Type: Spontaneous
  Country: US (occurrence: US)
  Receive Date: 20170713
  Receipt Date: 20170713
  Transmission Date: 20171127
  Serious: No
  Sender: FDA-Public Use
  Company Number: US-ASTELLAS-2017US004377

PATIENT
  Sex: Female

DRUGS (2)
  1. BENEFIBER                          /00677201/ [Suspect]
     Active Substance: ICODEXTRIN
     Indication: COELIAC DISEASE
     Dosage: UNK UNK, UNKNOWN FREQ.
     Route: 065
  2. MYRBETRIQ [Suspect]
     Active Substance: MIRABEGRON
     Indication: PRODUCT USED FOR UNKNOWN INDICATION
     Dosage: UNK, ONCE DAILY
     Route: 065

REACTIONS (1)
  - Diarrhoea [Unknown]
